FAERS Safety Report 4353644-X (Version None)
Quarter: 2004Q2

REPORT INFORMATION
  Report Type: 
  Country: None (occurrence: None)
  Receive Date: 20040430
  Receipt Date: 20040421
  Transmission Date: 20050107
  Serious: Yes (Hospitalization)
  Sender: FDA-Public Use
  Company Number: 04P-087-0258629-00

PATIENT
  Age: 27 Year
  Sex: Female
  Weight: 44.2 kg

DRUGS (11)
  1. BIAXIN [Suspect]
     Indication: HELICOBACTER INFECTION
     Dosage: 400 MG, 2 IN 1 D, PER ORAL
     Route: 048
     Dates: start: 20031023, end: 20031029
  2. OMEPRAZOLE [Suspect]
     Indication: GASTRIC ULCER
     Dosage: SEE IMAGE, PER ORAL
     Route: 048
     Dates: start: 20031010, end: 20031022
  3. OMEPRAZOLE [Suspect]
     Indication: HELICOBACTER INFECTION
     Dosage: SEE IMAGE, PER ORAL
     Route: 048
     Dates: start: 20031010, end: 20031022
  4. OMEPRAZOLE [Suspect]
     Indication: GASTRIC ULCER
     Dosage: SEE IMAGE, PER ORAL
     Route: 048
     Dates: start: 20031023, end: 20031029
  5. OMEPRAZOLE [Suspect]
     Indication: HELICOBACTER INFECTION
     Dosage: SEE IMAGE, PER ORAL
     Route: 048
     Dates: start: 20031023, end: 20031029
  6. OMEPRAZOLE [Suspect]
     Indication: GASTRIC ULCER
     Dosage: SEE IMAGE, PER ORAL
     Route: 048
     Dates: start: 20031030, end: 20031107
  7. OMEPRAZOLE [Suspect]
     Indication: HELICOBACTER INFECTION
     Dosage: SEE IMAGE, PER ORAL
     Route: 048
     Dates: start: 20031030, end: 20031107
  8. AMOXICILLIN [Suspect]
     Indication: GASTRIC ULCER
     Dosage: 150 MG, 1 IN 1 D, PER ORAL
     Route: 048
     Dates: start: 20031023, end: 20031029
  9. AMOXICILLIN [Suspect]
     Indication: HELICOBACTER INFECTION
     Dosage: 150 MG, 1 IN 1 D, PER ORAL
     Route: 048
     Dates: start: 20031023, end: 20031029
  10. REBAMIPIDE [Concomitant]
  11. ROXATIDINE ACETATE HCL [Concomitant]

REACTIONS (3)
  - ENTEROCOLITIS HAEMORRHAGIC [None]
  - HELICOBACTER INFECTION [None]
  - THROMBOCYTOPENIA [None]
